FAERS Safety Report 5582013-X (Version None)
Quarter: 2008Q1

REPORT INFORMATION
  Report Type: 
  Country: None (occurrence: None)
  Receive Date: 20080104
  Receipt Date: 20080102
  Transmission Date: 20080703
  Serious: Yes (Life-Threatening, Hospitalization)
  Sender: FDA-Public Use
  Company Number: DE-SANOFI-SYNTHELABO-F04200800001

PATIENT
  Age: 69 Year
  Sex: Female
  Weight: 72 kg

DRUGS (7)
  1. CALCIUM MAGNESIUM [Concomitant]
     Indication: PREMEDICATION
     Dosage: 1000 MG BEFORE OXALIPLATIN INFUSION
     Route: 042
     Dates: start: 20070320, end: 20070320
  2. CIDEGOL [Concomitant]
     Indication: PREMEDICATION
     Dosage: 200 ML AS NEEDED
     Route: 003
  3. FOLINIC ACID [Suspect]
     Indication: RECTOSIGMOID CANCER
     Route: 041
     Dates: start: 20070320, end: 20070320
  4. ZOFRAN [Concomitant]
     Indication: PREMEDICATION
     Dosage: AS NEEDED
     Route: 048
  5. FLUOROURACIL [Suspect]
     Indication: RECTOSIGMOID CANCER
     Route: 041
     Dates: start: 20070320, end: 20070320
  6. ZOFRAN [Concomitant]
     Route: 042
     Dates: start: 20070301, end: 20070301
  7. ELOXATIN [Suspect]
     Indication: RECTOSIGMOID CANCER
     Route: 041
     Dates: start: 20070320, end: 20070320

REACTIONS (5)
  - ALOPECIA [None]
  - DIARRHOEA [None]
  - INFECTION [None]
  - MUCOSAL INFLAMMATION [None]
  - PANCYTOPENIA [None]
